FAERS Safety Report 23462077 (Version 1)
Quarter: 2024Q1

REPORT INFORMATION
  Report Type: Spontaneous
  Country: US (occurrence: None)
  Receive Date: 20240130
  Receipt Date: 20240130
  Transmission Date: 20240410
  Serious: No
  Sender: FDA-Public Use
  Company Number: None

PATIENT
  Age: 81 Year
  Sex: Male
  Weight: 99.79 kg

DRUGS (16)
  1. ERLEADA [Suspect]
     Active Substance: APALUTAMIDE
     Indication: Prostate cancer
     Dosage: FREQUENCY : DAILY;?
     Route: 048
     Dates: start: 20231027, end: 20231107
  2. ALENDRONATE SODIUM [Concomitant]
     Active Substance: ALENDRONATE SODIUM
  3. ALPRAZOLAM [Concomitant]
     Active Substance: ALPRAZOLAM
  4. TAMSULOSIN HYDROCHLORIDE [Concomitant]
     Active Substance: TAMSULOSIN HYDROCHLORIDE
  5. ROSAVASTATIN CALCIUM [Concomitant]
  6. TRAMADOL HYDRACHLORIDE [Concomitant]
  7. VITAMIN C [Suspect]
     Active Substance: ASCORBIC ACID
  8. VITAMIN B12 [Concomitant]
     Active Substance: CYANOCOBALAMIN
  9. APPLE CIDER [Concomitant]
  10. MAGNESIUM [Concomitant]
     Active Substance: MAGNESIUM
  11. CENTRUM 1 A DAY [Concomitant]
  12. CALCIUM [Suspect]
     Active Substance: CALCIUM
  13. PROBIOTICS NOS [Concomitant]
     Active Substance: PROBIOTICS NOS
  14. GLUCOSOMIN + CONDROITIN [Concomitant]
  15. GINKO BILOBIA [Concomitant]
  16. VITAMIN D3 [Concomitant]
     Active Substance: CHOLECALCIFEROL

REACTIONS (6)
  - Insomnia [None]
  - Fatigue [None]
  - Muscle spasms [None]
  - Depression [None]
  - Apathy [None]
  - Balance disorder [None]

NARRATIVE: CASE EVENT DATE: 20231027
